FAERS Safety Report 23930617 (Version 3)
Quarter: 2024Q3

REPORT INFORMATION
  Report Type: Spontaneous
  Country: FR (occurrence: FR)
  Receive Date: 20240603
  Receipt Date: 20240827
  Transmission Date: 20241017
  Serious: Yes (Death, Hospitalization)
  Sender: JOHNSON AND JOHNSON
  Company Number: FR-JNJFOC-20240585589

PATIENT
  Age: 51 Year
  Sex: Male
  Weight: 87 kg

DRUGS (6)
  1. YONDELIS [Suspect]
     Active Substance: TRABECTEDIN
     Indication: Myxoid liposarcoma
     Dosage: ON 19-APR-2024, THE PATIENT RECEIVED HIS THIRD CYCLE OF YONDELIS
     Route: 065
     Dates: start: 202403, end: 20240419
  2. ESOMEPRAZOLE [Concomitant]
     Active Substance: ESOMEPRAZOLE
  3. LEVOTHYROXINE [Concomitant]
     Active Substance: LEVOTHYROXINE\LEVOTHYROXINE SODIUM
  4. OLANZAPINE [Concomitant]
     Active Substance: OLANZAPINE
     Dates: start: 20240419
  5. PEGFILGRASTIM [Concomitant]
     Active Substance: PEGFILGRASTIM
  6. ERYTHROPOIETIN [Concomitant]
     Active Substance: ERYTHROPOIETIN

REACTIONS (7)
  - Multiple organ dysfunction syndrome [Fatal]
  - Bone marrow failure [Fatal]
  - Acute respiratory distress syndrome [Fatal]
  - Hepatocellular injury [Fatal]
  - Acute pulmonary oedema [Fatal]
  - Hyperleukocytosis [Fatal]
  - Acute kidney injury [Fatal]

NARRATIVE: CASE EVENT DATE: 20240421
